FAERS Safety Report 18628175 (Version 1)
Quarter: 2020Q4

REPORT INFORMATION
  Report Type: Spontaneous
  Country: FR (occurrence: FR)
  Receive Date: 20201217
  Receipt Date: 20201217
  Transmission Date: 20210114
  Serious: Yes (Hospitalization)
  Sender: FDA-Public Use
  Company Number: FR-TEVA-2020-FR-1857694

PATIENT
  Age: 74 Year
  Sex: Male
  Weight: 115 kg

DRUGS (15)
  1. LASILIX [Interacting]
     Active Substance: FUROSEMIDE
     Indication: HYPERTENSION
     Dosage: 60 MG IN THE MORNING AND 40 MG AT NOON, UNIT DOSE: 100 MG
     Route: 048
     Dates: start: 2015
  2. CACIT VITAMINE D3 [Concomitant]
     Active Substance: CALCIUM CARBONATE\CHOLECALCIFEROL
     Indication: OSTEOPOROSIS PROPHYLAXIS
     Dosage: 2 DOSAGE FORMS DAILY; THE MORNING,
     Route: 048
  3. CORTANCYL 5 MG, COMPRIME [Concomitant]
     Active Substance: PREDNISONE
     Indication: TRANSPLANT
     Dosage: 5 MILLIGRAM DAILY; THE MORNING
     Route: 048
  4. TRULICITY [Suspect]
     Active Substance: DULAGLUTIDE
     Indication: TYPE 2 DIABETES MELLITUS
     Dosage: 1.5 MG
     Route: 058
     Dates: start: 20200924, end: 20201021
  5. NEORAL [Concomitant]
     Active Substance: CYCLOSPORINE
     Indication: TRANSPLANT
     Dosage: 200 MILLIGRAM DAILY; MORNING AND EVENING
     Route: 048
     Dates: start: 1998
  6. EZETROL 10 MG, COMPRIME [Concomitant]
     Active Substance: EZETIMIBE
     Indication: MYOCARDIAL ISCHAEMIA
     Dosage: 10 MILLIGRAM DAILY; THE EVENING
     Route: 048
  7. ENALAPRIL (MALEATE D^) [Suspect]
     Active Substance: ENALAPRIL MALEATE
     Indication: HYPERTENSION
     Dosage: 40 MG
     Route: 048
     Dates: start: 2015
  8. LERCAN 10 MG, COMPRIME PELLICULE SECABLE [Interacting]
     Active Substance: LERCANIDIPINE HYDROCHLORIDE
     Indication: HYPERTENSION
     Dosage: 20 MILLIGRAM DAILY; 2 IN THE MORNING
     Route: 048
     Dates: start: 20200429
  9. CELLCEPT [Concomitant]
     Active Substance: MYCOPHENOLATE MOFETIL\MYCOPHENOLATE MOFETIL HYDROCHLORIDE
     Indication: TRANSPLANT
     Dosage: 4000 MILLIGRAM DAILY; MORNING AND EVENING
     Route: 048
     Dates: start: 1998
  10. CARDENSIEL 10 MG, COMPRIME PELLICULE SECABLE [Concomitant]
     Indication: HYPERTENSION
     Dosage: 10 MG
     Route: 048
  11. MAG 2 [Concomitant]
     Active Substance: MAGNESIUM
     Indication: HYPOMAGNESAEMIA
     Dosage: 2 IN THE MORNING AND 2 IN THE EVENING, UNIT DOSE: 4 DF
     Route: 048
     Dates: start: 20200429
  12. DIFFU K [Concomitant]
     Active Substance: POTASSIUM CHLORIDE
     Indication: HYPOKALAEMIA
     Dosage: 3 DOSAGE FORMS DAILY; 1-1-1
     Route: 048
  13. ELIQUIS [Concomitant]
     Active Substance: APIXABAN
     Indication: ATRIAL FIBRILLATION
     Dosage: 10 MILLIGRAM DAILY; MORNING AND EVENING
     Route: 048
     Dates: start: 202001
  14. PRAVASTATINE SODIQUE [Concomitant]
     Active Substance: PRAVASTATIN SODIUM
     Indication: MYOCARDIAL ISCHAEMIA
     Dosage: 20 MILLIGRAM DAILY; THE EVENING
     Route: 048
  15. ROVALCYTE 450 MG, COMPRIME PELLICULE [Concomitant]
     Active Substance: VALGANCICLOVIR HYDROCHLORIDE
     Indication: CYTOMEGALOVIRUS INFECTION
     Dosage: 450 MG
     Route: 048
     Dates: start: 20200604

REACTIONS (5)
  - Acute kidney injury [Not Recovered/Not Resolved]
  - Drug interaction [Unknown]
  - Diarrhoea [Not Recovered/Not Resolved]
  - Vomiting [Not Recovered/Not Resolved]
  - Weight decreased [Not Recovered/Not Resolved]

NARRATIVE: CASE EVENT DATE: 20201009
